FAERS Safety Report 10137103 (Version 2)
Quarter: 2014Q2

REPORT INFORMATION
  Report Type: Spontaneous
  Country: US (occurrence: US)
  Receive Date: 20140429
  Receipt Date: 20140429
  Transmission Date: 20141212
  Serious: No
  Sender: FDA-Public Use
  Company Number: US-ABBVIE-14P-163-1205288-00

PATIENT
  Age: 64 Year
  Sex: Male
  Weight: 72.64 kg

DRUGS (8)
  1. ANDROGEL [Suspect]
     Indication: BLOOD TESTOSTERONE DECREASED
     Route: 061
     Dates: start: 201310, end: 20140214
  2. ANDROGEL [Suspect]
     Dates: start: 20140214
  3. METFORMIN [Concomitant]
     Indication: DIABETES MELLITUS
  4. SIMVASTATIN [Concomitant]
     Indication: BLOOD CHOLESTEROL INCREASED
  5. XANAX [Concomitant]
     Indication: PRODUCT USED FOR UNKNOWN INDICATION
  6. FENTANYL [Concomitant]
     Indication: BACK PAIN
  7. OXYCONTIN [Concomitant]
     Indication: BACK PAIN
  8. CYMBALTA [Concomitant]
     Indication: PRODUCT USED FOR UNKNOWN INDICATION

REACTIONS (4)
  - Drug administered at inappropriate site [Unknown]
  - Drug ineffective [Unknown]
  - Blood testosterone decreased [Unknown]
  - Incorrect dose administered [Unknown]
